FAERS Safety Report 22020606 (Version 2)
Quarter: 2023Q1

REPORT INFORMATION
  Report Type: Spontaneous
  Country: US (occurrence: US)
  Receive Date: 20230222
  Receipt Date: 20230316
  Transmission Date: 20230417
  Serious: Yes (Other)
  Sender: FDA-Public Use
  Company Number: US-PFIZER INC-PV202300034293

PATIENT
  Age: 69 Year
  Sex: Female
  Weight: 85.261 kg

DRUGS (21)
  1. IBRANCE [Suspect]
     Active Substance: PALBOCICLIB
     Indication: Breast cancer female
     Dosage: 100 MG, CYCLIC (1 TAB DAILY FOR 21 DAYS FOLLOWED BY 7 DAYS OFF)
     Route: 048
     Dates: start: 20221007
  2. IBRANCE [Suspect]
     Active Substance: PALBOCICLIB
     Dosage: 100 MG, CYCLIC (D1-21)
     Route: 048
     Dates: start: 20221025
  3. CULTURELLE [Concomitant]
     Active Substance: LACTOBACILLUS RHAMNOSUS
  4. ASPIRIN [Concomitant]
     Active Substance: ASPIRIN
  5. FUROSEMIDE [Concomitant]
     Active Substance: FUROSEMIDE
  6. FISH OIL [Concomitant]
     Active Substance: FISH OIL
  7. AZITHROMYCIN [Concomitant]
     Active Substance: AZITHROMYCIN
  8. ATENOLOL [Concomitant]
     Active Substance: ATENOLOL
  9. LETROZOLE [Concomitant]
     Active Substance: LETROZOLE
  10. ZOFRAN [Concomitant]
     Active Substance: ONDANSETRON HYDROCHLORIDE
  11. PREDNISONE [Concomitant]
     Active Substance: PREDNISONE
  12. CALCIUM\CHOLECALCIFEROL [Concomitant]
     Active Substance: CALCIUM\CHOLECALCIFEROL
  13. LISINOPRIL [Concomitant]
     Active Substance: LISINOPRIL
  14. VITAMIN D NOS [Concomitant]
     Active Substance: VITAMIN D NOS
  15. ALBUTEROL [Concomitant]
     Active Substance: ALBUTEROL
  16. DIAZEPAM [Concomitant]
     Active Substance: DIAZEPAM
  17. DOXAZOSIN [Concomitant]
     Active Substance: DOXAZOSIN MESYLATE
  18. MAGNESIUM [Concomitant]
     Active Substance: MAGNESIUM
  19. POTASSIUM [Concomitant]
     Active Substance: POTASSIUM
  20. PRAMIPEXOLE [Concomitant]
     Active Substance: PRAMIPEXOLE
  21. PRAVASTATIN [Concomitant]
     Active Substance: PRAVASTATIN

REACTIONS (2)
  - Neutropenia [Not Recovered/Not Resolved]
  - Dizziness [Unknown]

NARRATIVE: CASE EVENT DATE: 20221116
